FAERS Safety Report 15962485 (Version 1)
Quarter: 2019Q1

REPORT INFORMATION
  Report Type: Spontaneous
  Country: US (occurrence: US)
  Receive Date: 20190124
  Receipt Date: 20190124
  Transmission Date: 20190417
  Serious: Yes (Other)
  Sender: FDA-Public Use
  Company Number: None

PATIENT
  Age: 75 Year
  Sex: Female

DRUGS (12)
  1. VITAMIN D3 [Concomitant]
     Active Substance: CHOLECALCIFEROL
  2. ESBRIET [Suspect]
     Active Substance: PIRFENIDONE
     Indication: IDIOPATHIC PULMONARY FIBROSIS
     Dosage: DOSE  801
     Route: 048
     Dates: start: 20170413
  3. SINGULAIR [Concomitant]
     Active Substance: MONTELUKAST SODIUM
  4. ACTIVAN [Concomitant]
  5. QUETIAPINE. [Concomitant]
     Active Substance: QUETIAPINE
  6. ALENDRONATE [Concomitant]
     Active Substance: ALENDRONATE SODIUM
  7. ASPIRIN. [Concomitant]
     Active Substance: ASPIRIN
  8. LISINOPRIL. [Concomitant]
     Active Substance: LISINOPRIL
  9. ALEVE [Concomitant]
     Active Substance: NAPROXEN SODIUM
  10. REQUUIP [Concomitant]
  11. LASIX [Concomitant]
     Active Substance: FUROSEMIDE
  12. PEPCID [Concomitant]
     Active Substance: FAMOTIDINE

REACTIONS (1)
  - Bronchiectasis [None]

NARRATIVE: CASE EVENT DATE: 20181221
